FAERS Safety Report 7488420-2 (Version None)
Quarter: 2011Q2

REPORT INFORMATION
  Report Type: 
  Country: None (occurrence: None)
  Receive Date: 20110518
  Receipt Date: 20110504
  Transmission Date: 20111010
  Serious: Yes (Other)
  Sender: FDA-Public Use
  Company Number: US-JNJFOC-20110409781

PATIENT
  Sex: Male
  Weight: 99.11 kg

DRUGS (3)
  1. CORTICOSTEROIDS [Concomitant]
     Indication: PRODUCT USED FOR UNKNOWN INDICATION
  2. STELARA [Suspect]
     Indication: PSORIASIS
     Route: 058
     Dates: start: 20091210
  3. REMICADE [Suspect]
     Indication: PRODUCT USED FOR UNKNOWN INDICATION
     Route: 050
     Dates: start: 20051101, end: 20090929

REACTIONS (1)
  - PSORIATIC ARTHROPATHY [None]
